FAERS Safety Report 7731852-5 (Version None)
Quarter: 2011Q3

REPORT INFORMATION
  Report Type: 
  Country: None (occurrence: None)
  Receive Date: 20110906
  Receipt Date: 20110823
  Transmission Date: 20111222
  Serious: Yes (Other)
  Sender: FDA-Public Use
  Company Number: GB-NOVOPROD-334119

PATIENT

DRUGS (5)
  1. DIAMORPHINE [Suspect]
     Indication: SPINAL ANAESTHESIA
     Dosage: 300 UG,
     Route: 050
  2. BUPIVACAINE HCL [Suspect]
     Indication: SPINAL ANAESTHESIA
     Dosage: 2.5 ML,
     Route: 050
  3. VAGIFEM [Suspect]
     Indication: PRODUCT USED FOR UNKNOWN INDICATION
  4. DEXAMETHASONE [Suspect]
     Indication: PRODUCT USED FOR UNKNOWN INDICATION
  5. BENDROFLUAZIDE [Concomitant]

REACTIONS (1)
  - MYOCLONUS [None]
